FAERS Safety Report 13012463 (Version 1)
Quarter: 2016Q4

REPORT INFORMATION
  Report Type: Spontaneous
  Country: US (occurrence: US)
  Receive Date: 20161208
  Receipt Date: 20161208
  Transmission Date: 20170207
  Serious: Yes (Hospitalization)
  Sender: FDA-Public Use
  Company Number: None

PATIENT
  Age: 55 Year
  Sex: Male
  Weight: 135.39 kg

DRUGS (6)
  1. ATORVASTATIN [Concomitant]
     Active Substance: ATORVASTATIN
  2. METHADONE [Concomitant]
     Active Substance: METHADONE HYDROCHLORIDE
  3. XANAX [Concomitant]
     Active Substance: ALPRAZOLAM
  4. CLONIDINE. [Concomitant]
     Active Substance: CLONIDINE
  5. KLONOPIN [Concomitant]
     Active Substance: CLONAZEPAM
  6. HARVONI [Suspect]
     Active Substance: LEDIPASVIR\SOFOSBUVIR
     Indication: HEPATITIS C
     Dosage: 90MG/400MG ONCE DAILY BY MOUTH?14DEC2016 (EXPECTED)
     Route: 048
     Dates: start: 20160921

REACTIONS (6)
  - Pyrexia [None]
  - Oedema peripheral [None]
  - Postoperative wound infection [None]
  - Cellulitis [None]
  - Chills [None]
  - Abscess [None]

NARRATIVE: CASE EVENT DATE: 20161029
